FAERS Safety Report 11788893 (Version 1)
Quarter: 2015Q4

REPORT INFORMATION
  Report Type: Spontaneous
  Country: NL (occurrence: NL)
  Receive Date: 20151201
  Receipt Date: 20151201
  Transmission Date: 20160305
  Serious: Yes (Other)
  Sender: FDA-Public Use
  Company Number: NL-WATSON-2015-18446

PATIENT
  Age: 6 Year
  Sex: Female

DRUGS (2)
  1. HALOPERIDOL (UNKNOWN) [Suspect]
     Active Substance: HALOPERIDOL
     Indication: DELIRIUM
     Dosage: 0.03 MG/KG, DAILY (ON DAY 1)
     Route: 065
  2. HALOPERIDOL (UNKNOWN) [Suspect]
     Active Substance: HALOPERIDOL
     Dosage: 0.025 MG/KG, DAILY (ON DAYS 2 AND 3)
     Route: 065

REACTIONS (2)
  - Cogwheel rigidity [Recovered/Resolved]
  - Oculogyric crisis [Recovered/Resolved]
